FAERS Safety Report 12442700 (Version 1)
Quarter: 2016Q2

REPORT INFORMATION
  Report Type: Spontaneous
  Country: US (occurrence: None)
  Receive Date: 20160606
  Receipt Date: 20160606
  Transmission Date: 20160815
  Serious: Yes (Other)
  Sender: FDA-Public Use
  Company Number: None

PATIENT
  Age: 58 Year
  Sex: Female
  Weight: 83.92 kg

DRUGS (5)
  1. FLEXRIL [Concomitant]
  2. LISINOPRIL. [Suspect]
     Active Substance: LISINOPRIL
     Dosage: IN THE MORNING
     Route: 048
     Dates: start: 20130101
  3. CINNAMON PILL [Concomitant]
  4. FISH OIL [Concomitant]
     Active Substance: FISH OIL
  5. CALCIUM WITH VITAMIN D [Concomitant]
     Active Substance: CALCIUM\VITAMIN D

REACTIONS (9)
  - Hypertension [None]
  - Throat irritation [None]
  - Pharyngeal paraesthesia [None]
  - Chills [None]
  - Cough [None]
  - Bronchitis [None]
  - Retching [None]
  - Drug ineffective [None]
  - Vomiting [None]

NARRATIVE: CASE EVENT DATE: 20150611
